FAERS Safety Report 8605331-7 (Version None)
Quarter: 2012Q3

REPORT INFORMATION
  Report Type: 
  Country: None (occurrence: None)
  Receive Date: 20120820
  Receipt Date: 20120813
  Transmission Date: 20120928
  Serious: Yes (Other)
  Sender: FDA-Public Use
  Company Number: BR-ABBOTT-12P-020-0968352-00

PATIENT
  Sex: Female
  Weight: 50 kg

DRUGS (8)
  1. BROMAZEPAM [Concomitant]
     Indication: ANXIOLYTIC THERAPY
  2. IMIPRAMINE HCL [Concomitant]
     Indication: DEPRESSION
     Route: 048
  3. KETOROLAC TROMETHAMINE [Concomitant]
     Indication: PAIN
     Route: 048
  4. OMEPRAZOLE [Concomitant]
     Indication: GASTRIC DISORDER
     Route: 048
  5. DOMPERIDONE [Concomitant]
     Indication: GASTROOESOPHAGEAL REFLUX PROPHYLAXIS
     Route: 047
  6. PREDNISONE TAB [Concomitant]
     Indication: ARTHRITIS
     Route: 048
  7. CALCIUM [Concomitant]
     Indication: BONE DISORDER
     Route: 048
  8. HUMIRA [Suspect]
     Indication: RHEUMATOID ARTHRITIS

REACTIONS (4)
  - OPEN FRACTURE [None]
  - OSTEOPOROSIS [None]
  - DIABETES MELLITUS INADEQUATE CONTROL [None]
  - FALL [None]
